FAERS Safety Report 4627089-9 (Version None)
Quarter: 2005Q2

REPORT INFORMATION
  Report Type: 
  Country: None (occurrence: None)
  Receive Date: 20050405
  Receipt Date: 20050324
  Transmission Date: 20051028
  Serious: Yes (Hospitalization)
  Sender: FDA-Public Use
  Company Number: KR-SANOFI-SYNTHELABO-F01200500470

PATIENT
  Sex: Female

DRUGS (7)
  1. OXALIPLATIN [Suspect]
     Indication: GASTRIC CANCER
     Route: 042
     Dates: start: 20050223, end: 20050223
  2. CAPECITABINE [Suspect]
     Dosage: 2500MG/M2 DAILY PER ORAL FROM DAY 1 TO DAY 14, Q3W
     Route: 048
     Dates: start: 20050223, end: 20050308
  3. BIOSE [Concomitant]
     Dosage: UNK
     Route: 065
     Dates: start: 20050110, end: 20050322
  4. GASMOTIN [Concomitant]
     Dosage: UNK
     Route: 065
     Dates: start: 20050110, end: 20050322
  5. GASTER [Concomitant]
     Dosage: UNK
     Route: 065
     Dates: start: 20050110, end: 20050322
  6. MGO [Concomitant]
     Dosage: UNK
     Route: 065
     Dates: start: 20050110, end: 20050322
  7. OXYCONTIN [Concomitant]
     Dosage: UNK
     Route: 065
     Dates: start: 20050110, end: 20050322

REACTIONS (4)
  - CEREBRAL INFARCTION [None]
  - DISEASE PROGRESSION [None]
  - HAEMATEMESIS [None]
  - MYOCARDIAL INFARCTION [None]
